FAERS Safety Report 17657807 (Version 2)
Quarter: 2020Q2

REPORT INFORMATION
  Report Type: Spontaneous
  Country: CA (occurrence: CA)
  Receive Date: 20200411
  Receipt Date: 20200520
  Transmission Date: 20200713
  Serious: Yes (Hospitalization)
  Sender: FDA-Public Use
  Company Number: CA-CELLTRION INC.-2019CA028128

PATIENT

DRUGS (11)
  1. TYLENOL [Concomitant]
     Active Substance: ACETAMINOPHEN
     Dosage: UNK UNK, AS NEEDED
     Route: 048
  2. INFLECTRA [Suspect]
     Active Substance: INFLIXIMAB-DYYB
     Dosage: 10 MG/KG, WEEKS 0, 1 AND 6, THEN EVERY 8 WEEKS
     Route: 042
     Dates: start: 20191223
  3. INFLECTRA [Suspect]
     Active Substance: INFLIXIMAB-DYYB
     Dosage: 10 MG/KG, WEEKS 0, 1 AND 6, THEN EVERY 8 WEEKS
     Route: 042
     Dates: start: 20191231
  4. INFLECTRA [Suspect]
     Active Substance: INFLIXIMAB-DYYB
     Dosage: 10 MG/KG, WEEKS 0, 1 AND 6, THEN EVERY 8 WEEKS
     Route: 042
     Dates: start: 20191231
  5. K-DUR [Concomitant]
     Active Substance: POTASSIUM CHLORIDE
     Dosage: UNK
     Route: 065
  6. PREDNISONE. [Concomitant]
     Active Substance: PREDNISONE
     Dosage: 50 MG (IN TAPERING DOSE)
     Route: 048
     Dates: start: 20191226
  7. INFLECTRA [Suspect]
     Active Substance: INFLIXIMAB-DYYB
     Dosage: 10 MG/KG, WEEKS 0, 1 AND 6, THEN EVERY 8 WEEKS
     Route: 042
     Dates: start: 20200225, end: 20200225
  8. PURINETHOL [Concomitant]
     Active Substance: MERCAPTOPURINE
     Dosage: 25 MG, 1X/DAY
     Route: 048
     Dates: start: 20191226
  9. SALOFALK [Concomitant]
     Dosage: HS (BEDTIME)
     Route: 054
     Dates: start: 20191226
  10. CALCIUM [Concomitant]
     Active Substance: CALCIUM
     Dosage: UNK
     Route: 048
  11. INFLECTRA [Suspect]
     Active Substance: INFLIXIMAB-DYYB
     Indication: CROHN^S DISEASE
     Dosage: 10 MG/KG, WEEKS 0, 1 AND 6, THEN EVERY 8 WEEKS
     Route: 042
     Dates: start: 20191216

REACTIONS (3)
  - Gastrointestinal disorder [Unknown]
  - Drug ineffective [Unknown]
  - Off label use [Unknown]

NARRATIVE: CASE EVENT DATE: 20191216
